FAERS Safety Report 24096472 (Version 8)
Quarter: 2025Q4

REPORT INFORMATION
  Report Type: Spontaneous
  Country: US (occurrence: US)
  Receive Date: 20240716
  Receipt Date: 20251003
  Transmission Date: 20260117
  Serious: Yes (Death, Hospitalization, Other)
  Sender: SANOFI AVENTIS
  Company Number: US-SA-SAC20240709000038

PATIENT
  Age: 76 Year
  Sex: Female

DRUGS (13)
  1. KEVZARA [Suspect]
     Active Substance: SARILUMAB
     Indication: Polymyalgia rheumatica
     Dosage: 200 MG, QOW
     Route: 058
     Dates: start: 202406, end: 2024
  2. KEVZARA [Suspect]
     Active Substance: SARILUMAB
     Dosage: 200 MG, QOW
     Route: 058
     Dates: start: 202503, end: 2025
  3. ZOLOFT [Concomitant]
     Active Substance: SERTRALINE HYDROCHLORIDE
     Dosage: 25 MG  DOSE EVERY
  4. PROLIA [Concomitant]
     Active Substance: DENOSUMAB
     Dosage: UNK
  5. BUDESONIDE [Concomitant]
     Active Substance: BUDESONIDE
     Dosage: UNK
  6. DEXILANT [Concomitant]
     Active Substance: DEXLANSOPRAZOLE
     Dosage: 16 MG  DOSE EVERY
  7. ATORVASTATIN [Concomitant]
     Active Substance: ATORVASTATIN
     Indication: Product used for unknown indication
     Dosage: UNK
  8. LUNESTA [Concomitant]
     Active Substance: ESZOPICLONE
     Dosage: 2 MG  DOSE EVERY
  9. GABAPENTIN [Concomitant]
     Active Substance: GABAPENTIN
     Dosage: UNK
  10. MIDODRINE [Concomitant]
     Active Substance: MIDODRINE
     Indication: Product used for unknown indication
     Dosage: 5 MG  DOSE EVERY
  11. SPIRONOLACTONE [Concomitant]
     Active Substance: SPIRONOLACTONE
     Dosage: 25 MG  DOSE EVERY
  12. LISINOPRIL [Concomitant]
     Active Substance: LISINOPRIL
     Dosage: 2.5 MG  DOSE EVERY
  13. LIOTHYRONINE HYDROCHLORIDE [Concomitant]
     Active Substance: LIOTHYRONINE HYDROCHLORIDE
     Dosage: 5 MG

REACTIONS (6)
  - Death [Fatal]
  - Abdominal pain upper [Unknown]
  - Joint injury [Unknown]
  - Abdominal discomfort [Unknown]
  - Nasopharyngitis [Unknown]
  - Oropharyngeal pain [Unknown]

NARRATIVE: CASE EVENT DATE: 20240101
